FAERS Safety Report 5625135-7 (Version None)
Quarter: 2008Q1

REPORT INFORMATION
  Report Type: 
  Country: None (occurrence: None)
  Receive Date: 20080208
  Receipt Date: 20080125
  Transmission Date: 20080703
  Serious: Yes (Other)
  Sender: FDA-Public Use
  Company Number: 026#1#2008-00002

PATIENT
  Sex: Male

DRUGS (1)
  1. MONOKET-OD-50 (ISOSORBIDE MONONITRATE) [Suspect]
     Dosage: 100 MG (50 MG 2 IN 1 DAY (S)) ORAL
     Route: 048

REACTIONS (4)
  - AXONAL NEUROPATHY [None]
  - NERVE DEGENERATION [None]
  - NERVE INJURY [None]
  - PERIPHERAL SENSORIMOTOR NEUROPATHY [None]
